FAERS Safety Report 26086766 (Version 1)
Quarter: 2025Q4

REPORT INFORMATION
  Report Type: Spontaneous
  Country: US (occurrence: None)
  Receive Date: 20251124
  Receipt Date: 20251124
  Transmission Date: 20260117
  Serious: No
  Sender: FDA-CTU
  Company Number: None

PATIENT
  Age: 24 Year
  Sex: Male

DRUGS (5)
  1. HALOPERIDOL [Suspect]
     Active Substance: HALOPERIDOL
     Dosage: OTHER QUANTITY : 1 TABLET(S);?FREQUENCY : AT BEDTIME;?
     Route: 048
     Dates: start: 20251031
  2. LITHIUM [Concomitant]
     Active Substance: LITHIUM
  3. KEPPRA [Concomitant]
     Active Substance: LEVETIRACETAM
  4. EPIDIOLEX [Concomitant]
     Active Substance: CANNABIDIOL
  5. HALOPERIDOL [Concomitant]
     Active Substance: HALOPERIDOL

REACTIONS (3)
  - Drooling [None]
  - Crying [None]
  - Pain in extremity [None]

NARRATIVE: CASE EVENT DATE: 20251123
